FAERS Safety Report 4492818-4 (Version None)
Quarter: 2004Q4

REPORT INFORMATION
  Report Type: 
  Country: None (occurrence: None)
  Receive Date: 20041103
  Receipt Date: 20041020
  Transmission Date: 20050328
  Serious: No
  Sender: FDA-Public Use
  Company Number: 2004UW15372

PATIENT
  Age: 89 Year
  Sex: Female
  Weight: 55 kg

DRUGS (6)
  1. CRESTOR [Suspect]
     Dates: start: 20040213, end: 20040408
  2. ATENOLOL [Concomitant]
  3. NORVASC [Concomitant]
  4. VITAMIN E [Concomitant]
  5. VITAMIN B-12 [Concomitant]
  6. ARTIFICAL TEARS [Concomitant]

REACTIONS (4)
  - MUSCLE ATROPHY [None]
  - MUSCULAR WEAKNESS [None]
  - SKIN DISORDER [None]
  - THROMBOCYTOPENIA [None]
